FAERS Safety Report 5529617-8 (Version None)
Quarter: 2007Q4

REPORT INFORMATION
  Report Type: 
  Country: None (occurrence: None)
  Receive Date: 20071129
  Receipt Date: 20071120
  Transmission Date: 20080405
  Serious: Yes (Death, Life-Threatening, Hospitalization, Other)
  Sender: FDA-Public Use
  Company Number: JP-PFIZER INC-2007075377

PATIENT
  Sex: Male
  Weight: 39 kg

DRUGS (8)
  1. SULPERAZON [Suspect]
     Indication: PROPHYLAXIS
     Dosage: DAILY DOSE:1GRAM
     Route: 042
     Dates: start: 20070901, end: 20070901
  2. SULPERAZON [Suspect]
     Route: 042
     Dates: start: 20070902, end: 20070906
  3. BASEN [Concomitant]
     Route: 048
  4. CALTAN [Concomitant]
     Route: 048
  5. MUCODYNE [Concomitant]
     Route: 048
  6. WARFARIN SODIUM [Concomitant]
     Route: 048
  7. EPOGEN [Concomitant]
     Route: 042
     Dates: start: 20070904, end: 20070904
  8. PLASMA PROTEIN FRACTION (HUMAN) [Concomitant]
     Route: 042

REACTIONS (2)
  - CARDIAC FAILURE CONGESTIVE [None]
  - PLATELET COUNT DECREASED [None]
